FAERS Safety Report 21503115 (Version 2)
Quarter: 2022Q4

REPORT INFORMATION
  Report Type: Spontaneous
  Country: US (occurrence: US)
  Receive Date: 20221025
  Receipt Date: 20221107
  Transmission Date: 20230113
  Serious: Yes (Other)
  Sender: FDA-Public Use
  Company Number: US-BAYER-2022A143502

PATIENT
  Age: 33 Year
  Sex: Male

DRUGS (1)
  1. KOGENATE FS [Suspect]
     Active Substance: ANTIHEMOPHILIC FACTOR, HUMAN RECOMBINANT
     Indication: Haemorrhage
     Dosage: 1059 IU, ONCE
     Dates: start: 20221012

REACTIONS (3)
  - Haemorrhage [None]
  - Peripheral swelling [None]
  - Contusion [None]

NARRATIVE: CASE EVENT DATE: 20221012
